FAERS Safety Report 4665198-9 (Version None)
Quarter: 2005Q2

REPORT INFORMATION
  Report Type: 
  Country: None (occurrence: None)
  Receive Date: 20050517
  Receipt Date: 20050124
  Transmission Date: 20051028
  Serious: No
  Sender: FDA-Public Use
  Company Number: S05-USA-00368-01

PATIENT
  Age: 52 Year
  Sex: Female

DRUGS (14)
  1. NAMENDA [Suspect]
     Indication: NERVE INJURY
     Dosage: 40 MG QD PO
     Route: 048
  2. NAMENDA [Suspect]
     Indication: NERVE INJURY
     Dates: end: 20050119
  3. NAMENDA [Suspect]
     Indication: NERVE INJURY
     Dosage: 5 MG QD PO
     Route: 048
     Dates: start: 20040801, end: 20040101
  4. NAMENDA [Suspect]
     Indication: NERVE INJURY
     Dosage: 5 MG BID PO
     Route: 048
     Dates: start: 20040101, end: 20040101
  5. NAMENDA [Suspect]
     Indication: NERVE INJURY
     Dosage: 15 MG QD PO
     Route: 048
     Dates: start: 20040101, end: 20040101
  6. NAMENDA [Suspect]
     Indication: NERVE INJURY
     Dosage: 10 MG BID PO
     Route: 048
     Dates: start: 20040101
  7. CATAPRES-TTS-1 [Concomitant]
  8. LIDODERM (LIDOCAINE) [Concomitant]
  9. ZANTAC [Concomitant]
  10. NEXIUM [Concomitant]
  11. LIPITOR [Concomitant]
  12. BELLADONNA [Concomitant]
  13. COLESTID [Concomitant]
  14. METAMUCIL [Concomitant]

REACTIONS (5)
  - CONFUSIONAL STATE [None]
  - DIARRHOEA [None]
  - DYSPNOEA [None]
  - NAUSEA [None]
  - PANIC ATTACK [None]
